FAERS Safety Report 8606474-4 (Version None)
Quarter: 2012Q3

REPORT INFORMATION
  Report Type: 
  Country: None (occurrence: None)
  Receive Date: 20120820
  Receipt Date: 20120815
  Transmission Date: 20120928
  Serious: Yes (Death, Hospitalization)
  Sender: FDA-Public Use
  Company Number: IE-ASTRAZENECA-2012SE34427

PATIENT
  Sex: Male

DRUGS (8)
  1. LAXATINE [Concomitant]
  2. AKINETON [Concomitant]
     Indication: MUSCULOSKELETAL STIFFNESS
     Route: 048
  3. RISPERDAL [Concomitant]
     Route: 048
  4. LIPITOR [Concomitant]
     Indication: BLOOD CHOLESTEROL INCREASED
     Route: 048
  5. VIMOVO [Suspect]
     Indication: BACK PAIN
     Dosage: 500 MG/20 MG TWO TIMES A DAY
     Route: 048
  6. METFORMIN HCL [Concomitant]
     Indication: DIABETES MELLITUS
  7. DEPIXOL [Concomitant]
     Indication: DELUSION
  8. ONGLYZA [Concomitant]
     Indication: DIABETES MELLITUS
     Route: 048

REACTIONS (5)
  - RENAL FAILURE ACUTE [None]
  - BLOOD TEST ABNORMAL [None]
  - MULTI-ORGAN FAILURE [None]
  - LIVER FUNCTION TEST ABNORMAL [None]
  - PANCREATIC CARCINOMA [None]
